FAERS Safety Report 10191972 (Version 1)
Quarter: 2014Q2

REPORT INFORMATION
  Report Type: Spontaneous
  Country: FR (occurrence: FR)
  Receive Date: 20140523
  Receipt Date: 20140523
  Transmission Date: 20141212
  Serious: Yes (Hospitalization)
  Sender: FDA-Public Use
  Company Number: FR-WATSON-2014-10465

PATIENT
  Age: 58 Year
  Sex: Female

DRUGS (2)
  1. IPRATROPIUM [Suspect]
     Indication: PRODUCT USED FOR UNKNOWN INDICATION
     Dosage: 2-5 AEROSOLS DAILY
     Route: 055
     Dates: start: 20131212, end: 20131216
  2. TERBUTALINE ARROW [Suspect]
     Indication: PRODUCT USED FOR UNKNOWN INDICATION
     Dosage: 2-5 AEROSOLS DAILY
     Route: 055
     Dates: start: 20131212, end: 20131216

REACTIONS (1)
  - Angle closure glaucoma [Recovering/Resolving]
